FAERS Safety Report 10353879 (Version 1)
Quarter: 2014Q3

REPORT INFORMATION
  Report Type: Spontaneous
  Country: US (occurrence: None)
  Receive Date: 20140729
  Receipt Date: 20140729
  Transmission Date: 20150326
  Serious: No
  Sender: FDA-Public Use
  Company Number: None

PATIENT
  Age: 66 Year
  Sex: Male

DRUGS (10)
  1. CALCIUM [Concomitant]
     Active Substance: CALCIUM
  2. LEVEMIR [Concomitant]
     Active Substance: INSULIN DETEMIR
  3. OXYCODONE [Concomitant]
     Active Substance: OXYCODONE
  4. GLIPIZIDE. [Concomitant]
     Active Substance: GLIPIZIDE
  5. VITAMIN D3 [Concomitant]
     Active Substance: CHOLECALCIFEROL
  6. NOVOLOG [Concomitant]
     Active Substance: INSULIN ASPART
  7. LORAZEPAM. [Concomitant]
     Active Substance: LORAZEPAM
  8. PROCHLORPERAZINE. [Concomitant]
     Active Substance: PROCHLORPERAZINE
  9. ZYTIGA [Suspect]
     Active Substance: ABIRATERONE ACETATE
     Indication: PROSTATE CANCER
     Route: 048
     Dates: start: 20130503
  10. LOSARTAN [Concomitant]
     Active Substance: LOSARTAN

REACTIONS (5)
  - Dyspnoea [None]
  - Hot flush [None]
  - Fatigue [None]
  - Nausea [None]
  - Headache [None]

NARRATIVE: CASE EVENT DATE: 20140728
